FAERS Safety Report 10029180 (Version 4)
Quarter: 2014Q2

REPORT INFORMATION
  Report Type: Spontaneous
  Country: US (occurrence: US)
  Receive Date: 20140321
  Receipt Date: 20140513
  Transmission Date: 20141212
  Serious: Yes (Hospitalization, Other)
  Sender: FDA-Public Use
  Company Number: US-RB-046563-12

PATIENT
  Age: 49 Year
  Sex: Female

DRUGS (10)
  1. SUBOXONE TABLETS [Suspect]
     Dosage: 24 MG DAILY, DAILY DOSE TAPERED TO 4 MG DAILY
     Route: 060
     Dates: start: 201009, end: 2012
  2. SUBOXONE TABLETS [Suspect]
     Indication: DRUG DEPENDENCE
     Route: 060
     Dates: start: 2012
  3. SUBOXONE FILM [Suspect]
     Indication: DRUG DEPENDENCE
     Dosage: SUBOXONE FILM; WEANED OFF OF THE FILM, WAS TAKING 2 MG DAILY
     Route: 060
     Dates: end: 20140204
  4. OXYCODONE [Suspect]
     Indication: PROCEDURAL PAIN
     Dosage: DOSING DETAILS UNKNOWN
     Route: 065
     Dates: start: 201312
  5. DIAZEPAM [Concomitant]
     Indication: ANXIETY
     Route: 048
     Dates: start: 1989, end: 20140313
  6. SYNTHROID [Concomitant]
     Indication: BASEDOW^S DISEASE
     Dosage: DOSING DETAILS UNKNOWN
     Route: 048
  7. LOTREL [Concomitant]
     Indication: HYPERTENSION
     Dosage: DOSING DETAILS UNKNOWN
     Route: 048
  8. ESTROGEL [Concomitant]
     Indication: PRODUCT USED FOR UNKNOWN INDICATION
     Dosage: DOSING DETAILS UNKNOWN
     Route: 065
  9. BUSPAR [Concomitant]
     Indication: ANXIETY
     Dosage: DOSING DETAILS UNKNOWN
     Route: 048
  10. NEXIUM [Concomitant]
     Indication: ULCER
     Dosage: DOSING DETAILS UNKNOWN
     Route: 048

REACTIONS (16)
  - Drug dependence [Recovered/Resolved]
  - Deafness [Unknown]
  - Cholelithiasis [Recovered/Resolved]
  - Procedural pain [Unknown]
  - Drug abuse [Recovered/Resolved]
  - Anger [Not Recovered/Not Resolved]
  - Crying [Not Recovered/Not Resolved]
  - Asthenia [Unknown]
  - Drug withdrawal syndrome [Unknown]
  - Dyspnoea [Unknown]
  - Feeling abnormal [Unknown]
  - Depression [Unknown]
  - Feeling of body temperature change [Recovered/Resolved]
  - Hyperhidrosis [Recovered/Resolved]
  - Neck mass [Not Recovered/Not Resolved]
  - Thyrotoxic crisis [Unknown]
